FAERS Safety Report 20776776 (Version 1)
Quarter: 2022Q2

REPORT INFORMATION
  Report Type: Spontaneous
  Country: US (occurrence: US)
  Receive Date: 20220502
  Receipt Date: 20220502
  Transmission Date: 20220720
  Serious: No
  Sender: FDA-Public Use
  Company Number: US-PFIZER INC-202101449476

PATIENT
  Age: 62 Year
  Sex: Female

DRUGS (3)
  1. LYRICA CR [Suspect]
     Active Substance: PREGABALIN
     Indication: Neuropathy peripheral
     Dosage: 2 DF, UNK (TWO LYRICA CR 165MG TABLETS)
  2. LYRICA CR [Suspect]
     Active Substance: PREGABALIN
     Indication: Type 2 diabetes mellitus
     Dosage: 330 MG, UNK (1 TABLET)
  3. LYRICA CR [Suspect]
     Active Substance: PREGABALIN
     Indication: Diabetic neuropathy
     Dosage: 330 MG, DAILY (1 TABLET)
     Route: 048

REACTIONS (1)
  - Drug ineffective [Unknown]
